FAERS Safety Report 9277554 (Version 1)
Quarter: 2013Q2

REPORT INFORMATION
  Report Type: Spontaneous
  Country: US (occurrence: US)
  Receive Date: 20130508
  Receipt Date: 20130508
  Transmission Date: 20140414
  Serious: Yes (Other)
  Sender: FDA-Public Use
  Company Number: US-ELI_LILLY_AND_COMPANY-US201305000918

PATIENT
  Age: 60 Year
  Sex: Female

DRUGS (4)
  1. CYMBALTA [Suspect]
     Indication: DEPRESSION
     Dosage: 60 MG, EACH MORNING
  2. PROPRANOLOL [Concomitant]
     Dosage: 20 MG, BID
  3. TRAZODONE [Concomitant]
     Dosage: 200 MG, EACH EVENING
  4. ABILIFY [Concomitant]
     Dosage: 5 MG, EACH EVENING

REACTIONS (1)
  - Gastrooesophageal cancer [Unknown]
